FAERS Safety Report 15507183 (Version 1)
Quarter: 2018Q4

REPORT INFORMATION
  Report Type: Report from Study
  Country: US (occurrence: US)
  Receive Date: 20181016
  Receipt Date: 20181016
  Transmission Date: 20190205
  Serious: Yes (Death, Hospitalization, Other)
  Sender: FDA-Public Use
  Company Number: US-GILEAD-2018-0367746

PATIENT
  Age: 81 Year
  Sex: Male

DRUGS (6)
  1. METOPROLOL. [Concomitant]
     Active Substance: METOPROLOL
  2. BUMETANIDE. [Concomitant]
     Active Substance: BUMETANIDE
  3. HYDROXYZINE [Concomitant]
     Active Substance: HYDROXYZINE HYDROCHLORIDE
  4. AMBRISENTAN [Suspect]
     Active Substance: AMBRISENTAN
     Indication: PULMONARY ARTERIAL HYPERTENSION
     Dosage: 10 MG, QD
     Route: 048
     Dates: start: 201203
  5. TADALAFIL. [Concomitant]
     Active Substance: TADALAFIL
  6. DIGOXIN. [Concomitant]
     Active Substance: DIGOXIN

REACTIONS (7)
  - Death [Fatal]
  - Cardiac arrest [Unknown]
  - Asthenia [Unknown]
  - Bradycardia [Unknown]
  - Fall [Unknown]
  - Clostridium difficile colitis [Unknown]
  - Renal failure [Unknown]

NARRATIVE: CASE EVENT DATE: 20181002
